FAERS Safety Report 9990207 (Version 1)
Quarter: 2014Q1

REPORT INFORMATION
  Report Type: Report from Study
  Country: US (occurrence: US)
  Receive Date: 20140310
  Receipt Date: 20140310
  Transmission Date: 20141002
  Serious: No
  Sender: FDA-Public Use
  Company Number: US-ABBVIE-13P-163-1135353-00

PATIENT
  Age: 29 Year
  Sex: Female

DRUGS (23)
  1. HUMIRA [Suspect]
     Indication: PSORIATIC ARTHROPATHY
     Dates: start: 20130814, end: 20130814
  2. HUMIRA [Suspect]
  3. EFFEXOR [Concomitant]
     Indication: DEPRESSION
  4. ADDERALL [Concomitant]
     Indication: ATTENTION DEFICIT/HYPERACTIVITY DISORDER
  5. VESICARE [Concomitant]
     Indication: HYPERTONIC BLADDER
  6. MULTIVITAMIN [Concomitant]
     Indication: PRODUCT USED FOR UNKNOWN INDICATION
  7. VITAMIN C [Concomitant]
     Indication: PRODUCT USED FOR UNKNOWN INDICATION
  8. VITAMIN D [Concomitant]
     Indication: PRODUCT USED FOR UNKNOWN INDICATION
  9. CALCIUM [Concomitant]
     Indication: PRODUCT USED FOR UNKNOWN INDICATION
  10. ATIVAN [Concomitant]
     Indication: ANXIETY
  11. GEODON [Concomitant]
     Indication: MOOD SWINGS
  12. AMITRIPTYLINE [Concomitant]
     Indication: MIGRAINE PROPHYLAXIS
  13. KLONOPIN [Concomitant]
     Indication: ANXIETY
     Dosage: PM
  14. PROTONIX [Concomitant]
     Indication: DYSPHAGIA
  15. GABAPENTIN [Concomitant]
     Indication: MIGRAINE PROPHYLAXIS
  16. MIRALAX [Concomitant]
     Indication: CONSTIPATION
  17. RELPAX [Concomitant]
     Indication: MIGRAINE
  18. ROBAXIN [Concomitant]
     Indication: MIGRAINE
  19. CLONIDINE [Concomitant]
     Indication: BLOOD PRESSURE ABNORMAL
  20. CLONIDINE [Concomitant]
     Indication: HYPERHIDROSIS
  21. LISINOPRIL [Concomitant]
     Indication: HYPERTENSION
  22. SIMVASTATIN [Concomitant]
     Indication: BLOOD CHOLESTEROL INCREASED
  23. SEROQUEL [Concomitant]
     Indication: INSOMNIA
     Dosage: PM

REACTIONS (1)
  - Lower respiratory tract infection [Not Recovered/Not Resolved]
